FAERS Safety Report 9012834 (Version 2)
Quarter: 2013Q1

REPORT INFORMATION
  Report Type: Other
  Country: IT (occurrence: IT)
  Receive Date: 20130114
  Receipt Date: 20130129
  Transmission Date: 20140127
  Serious: Yes (Hospitalization)
  Sender: FDA-Public Use
  Company Number: IT-NOVEN-12IT005933

PATIENT
  Age: 44 Year
  Sex: Female

DRUGS (1)
  1. PAROXETINE [Suspect]
     Indication: SUICIDE ATTEMPT
     Dosage: 12 DF, UNK (ABUSE)
     Route: 048
     Dates: start: 20120903, end: 20120903

REACTIONS (6)
  - Suicide attempt [Recovered/Resolved]
  - Psychomotor hyperactivity [Recovered/Resolved]
  - Drug abuse [Recovered/Resolved]
  - Intentional overdose [Recovered/Resolved]
  - Blood pressure increased [Recovered/Resolved]
  - Anxiety [Recovered/Resolved]
